APPROVED DRUG PRODUCT: RELYVRIO
Active Ingredient: SODIUM PHENYLBUTYRATE; TAURURSODIOL
Strength: 3GM/PACKET; 1GM/PACKET
Dosage Form/Route: FOR SUSPENSION;ORAL
Application: N216660 | Product #001
Applicant: AMYLYX PHARMACEUTICALS INC
Approved: Sep 29, 2022 | RLD: Yes | RS: No | Type: DISCN

PATENTS:
Patent 10857162 | Expires: Dec 24, 2033
Patent 10251896 | Expires: Dec 24, 2033
Patent 9872865 | Expires: Dec 24, 2033
Patent 11071742 | Expires: Dec 24, 2033
Patent 11583542 | Expires: Jul 27, 2040

EXCLUSIVITY:
Code: NCE | Date: Sep 29, 2027
Code: ODE-411 | Date: Sep 29, 2029